FAERS Safety Report 8299799-6 (Version None)
Quarter: 2012Q2

REPORT INFORMATION
  Report Type: 
  Country: None (occurrence: None)
  Receive Date: 20120419
  Receipt Date: 20120419
  Transmission Date: 20120825
  Serious: Yes (Other)
  Sender: FDA-Public Use
  Company Number: None

PATIENT
  Age: 56 Year
  Sex: Female
  Weight: 74.842 kg

DRUGS (2)
  1. SODIUM FLOURIDE VARNISH [Suspect]
     Indication: GINGIVAL PAIN
     Dosage: UNKNOWN
     Route: 048
  2. SODIUM FLOURIDE VARNISH [Suspect]
     Indication: GINGIVAL RECESSION
     Dosage: UNKNOWN
     Route: 048

REACTIONS (5)
  - GLOSSODYNIA [None]
  - ORAL CANDIDIASIS [None]
  - CONTACT STOMATITIS [None]
  - GLOSSITIS [None]
  - STREPTOCOCCAL INFECTION [None]
